FAERS Safety Report 9390895 (Version 1)
Quarter: 2013Q3

REPORT INFORMATION
  Report Type: Spontaneous
  Country: DE (occurrence: None)
  Receive Date: 20130705
  Receipt Date: 20130705
  Transmission Date: 20140515
  Serious: Yes (Hospitalization)
  Sender: FDA-Public Use
  Company Number: DE-023351

PATIENT
  Age: 77 Year
  Sex: Male

DRUGS (8)
  1. CHLORAMBUCIL [Suspect]
     Indication: CHRONIC LYMPHOCYTIC LEUKAEMIA
     Dosage: EVERY TWO WEEKS (42.5 MLLIGRAM, 2 IN 2 WEEKS), ORAL
     Route: 048
     Dates: start: 20100721
  2. RITUXIMAB [Suspect]
     Indication: CHRONIC LYMPHOCYTIC LEUKAEMIA
     Dosage: EVERY 28 DAYS (1000 MILLIGRAM), INTRAVENOUS (NOT OTHERWISE SPECIFIED)
     Route: 042
     Dates: start: 20100721
  3. INSULIN (INSULIN (HUMAN) [Concomitant]
  4. MARCUMAR (PHENPROCOUMON) [Concomitant]
  5. CLEXANE (ENOXAPARIN) [Concomitant]
  6. ALLOPURINOL (ALLIPURINOL) [Concomitant]
  7. DIGITOXIN (DIGTOXIN) [Concomitant]
  8. CONCOR (BISOPROLOL) [Concomitant]

REACTIONS (3)
  - Pyrexia [None]
  - Disorientation [None]
  - Infection [None]
